FAERS Safety Report 6123871-X (Version None)
Quarter: 2009Q1

REPORT INFORMATION
  Report Type: 
  Country: None (occurrence: None)
  Receive Date: 20090319
  Receipt Date: 20090317
  Transmission Date: 20090719
  Serious: Yes (Other)
  Sender: FDA-Public Use
  Company Number: US-BRISTOL-MYERS SQUIBB COMPANY-14547863

PATIENT
  Sex: Female

DRUGS (2)
  1. ABILIFY [Suspect]
  2. WINE [Suspect]

REACTIONS (1)
  - LOSS OF CONSCIOUSNESS [None]
